FAERS Safety Report 18422014 (Version 1)
Quarter: 2020Q4

REPORT INFORMATION
  Report Type: Report from Study
  Country: US (occurrence: US)
  Receive Date: 20201023
  Receipt Date: 20201023
  Transmission Date: 20210114
  Serious: Yes (Other)
  Sender: FDA-Public Use
  Company Number: US-BAYER-2020-222285

PATIENT
  Age: 63 Year
  Sex: Female

DRUGS (5)
  1. TELMISARTAN. [Concomitant]
     Active Substance: TELMISARTAN
  2. AMLODIPINE BESILATE [Concomitant]
     Active Substance: AMLODIPINE BESYLATE
  3. OXYCODONE [Concomitant]
     Active Substance: OXYCODONE
  4. STIVARGA [Suspect]
     Active Substance: REGORAFENIB
     Indication: COLON CANCER
     Dosage: 160 MG, QD
     Route: 048
  5. LONSURF [Concomitant]
     Active Substance: TIPIRACIL HYDROCHLORIDE\TRIFLURIDINE

REACTIONS (17)
  - Chest pain [None]
  - Hepatitis [None]
  - Burn oral cavity [None]
  - Weight decreased [Not Recovered/Not Resolved]
  - Pain [None]
  - Flank pain [Not Recovered/Not Resolved]
  - Dyspnoea [None]
  - Insomnia [None]
  - Fatigue [Recovering/Resolving]
  - Decreased appetite [Not Recovered/Not Resolved]
  - Constipation [Not Recovered/Not Resolved]
  - Food refusal [None]
  - Pneumonitis [Recovering/Resolving]
  - Ageusia [None]
  - Anosmia [None]
  - Cough [Not Recovered/Not Resolved]
  - Stomatitis [Not Recovered/Not Resolved]
